FAERS Safety Report 8010322-3 (Version None)
Quarter: 2011Q4

REPORT INFORMATION
  Report Type: 
  Country: None (occurrence: None)
  Receive Date: 20111221
  Receipt Date: 20111208
  Transmission Date: 20120403
  Serious: Yes (Other)
  Sender: FDA-Public Use
  Company Number: 2011SP057620

PATIENT
  Age: 18 Year
  Sex: Female

DRUGS (1)
  1. IMPLANON [Suspect]
     Indication: CONTRACEPTION
     Dosage: SBDE
     Route: 059
     Dates: start: 20100602

REACTIONS (6)
  - DEVICE DISLOCATION [None]
  - MULTI-ORGAN FAILURE [None]
  - VOMITING [None]
  - NAUSEA [None]
  - SOMNOLENCE [None]
  - IMMUNE SYSTEM DISORDER [None]
